FAERS Safety Report 7794739-8 (Version None)
Quarter: 2011Q4

REPORT INFORMATION
  Report Type: 
  Country: None (occurrence: None)
  Receive Date: 20111004
  Receipt Date: 20110927
  Transmission Date: 20120403
  Serious: No
  Sender: FDA-Public Use
  Company Number: US-PFIZER INC-2011210551

PATIENT
  Sex: Male
  Weight: 79.4 kg

DRUGS (16)
  1. IBUPROFEN (ADVIL) [Concomitant]
     Dosage: UNK, AS NEEDED
     Route: 048
  2. ONDANSETRON [Concomitant]
     Dosage: 8 MG, UNK
     Route: 048
  3. PREDNISONE [Concomitant]
     Dosage: 50 MG, 2X/DAY
     Route: 048
  4. DILANTIN [Concomitant]
     Dosage: UNK, 4X/DAY 2 TABS IN AM /2 TABS PM
     Route: 048
  5. BENADRYL [Concomitant]
     Dosage: 25 MG, UNK
  6. GUAIFENESIN W/DEXTROMETHORPHAN [Concomitant]
     Dosage: UNK, 2X/DAY
     Route: 048
  7. CLARINEX [Concomitant]
     Dosage: UNK
     Route: 048
  8. PROMETHAZINE [Concomitant]
     Indication: NAUSEA
     Dosage: 25 MG, EVERY 4 HRS AS NEEDED
     Route: 048
  9. PROZAC [Concomitant]
     Dosage: 20 MG, 2 TABS AM 1 TAB AFTERNOON
     Route: 048
  10. SUTENT [Suspect]
     Indication: MALIGNANT NEOPLASM OF ISLETS OF LANGERHANS
  11. KLONOPIN [Concomitant]
     Dosage: 0.5 MG, 2X/DAY
     Route: 048
  12. DEXAMETHASONE [Concomitant]
     Dosage: 4 MG, UNK
     Route: 048
  13. CISPLATIN [Suspect]
     Dosage: UNK
  14. PROMETHAZINE [Concomitant]
     Indication: VOMITING
  15. SUTENT [Suspect]
     Indication: PANCREATIC NEUROENDOCRINE TUMOUR METASTATIC
     Dosage: 25 MG, 1X/DAY 1 CAPSULE
     Route: 048
     Dates: start: 20110826
  16. KLONOPIN [Concomitant]
     Dosage: 1 MG, 1X/DAY (2 TABLETS) PO QHS
     Route: 048

REACTIONS (4)
  - DIARRHOEA [None]
  - HYPERTENSION [None]
  - NEUROPATHY PERIPHERAL [None]
  - FATIGUE [None]
